FAERS Safety Report 12271096 (Version 5)
Quarter: 2020Q3

REPORT INFORMATION
  Report Type: Other
  Country: CA (occurrence: CA)
  Receive Date: 20160415
  Receipt Date: 20200914
  Transmission Date: 20201102
  Serious: Yes (Other)
  Sender: FDA-Public Use
  Company Number: CA-ROCHE-1661916

PATIENT
  Age: 57 Year
  Sex: Male

DRUGS (6)
  1. REACTINE (CANADA) [Concomitant]
     Active Substance: CETIRIZINE HYDROCHLORIDE
  2. ESBRIET [Suspect]
     Active Substance: PIRFENIDONE
     Route: 048
     Dates: start: 20151111
  3. TECTA [Concomitant]
     Active Substance: PANTOPRAZOLE MAGNESIUM
  4. ESBRIET [Suspect]
     Active Substance: PIRFENIDONE
     Indication: IDIOPATHIC PULMONARY FIBROSIS
     Route: 048
     Dates: start: 20151028
  5. PREDNISONE. [Suspect]
     Active Substance: PREDNISONE
     Indication: PRODUCT USED FOR UNKNOWN INDICATION
     Route: 065
  6. ESBRIET [Suspect]
     Active Substance: PIRFENIDONE
     Route: 048
     Dates: start: 20151104

REACTIONS (31)
  - Nausea [Unknown]
  - Paraesthesia [Not Recovered/Not Resolved]
  - Eating disorder [Unknown]
  - Weight decreased [Unknown]
  - Discomfort [Unknown]
  - Arthralgia [Unknown]
  - Flatulence [Not Recovered/Not Resolved]
  - Dyspnoea exertional [Not Recovered/Not Resolved]
  - Crepitations [Unknown]
  - Alopecia [Recovering/Resolving]
  - Scleroderma [Unknown]
  - Dyspnoea [Unknown]
  - Headache [Not Recovered/Not Resolved]
  - Raynaud^s phenomenon [Not Recovered/Not Resolved]
  - Hiatus hernia [Unknown]
  - Diarrhoea [Recovering/Resolving]
  - Peripheral swelling [Unknown]
  - Cough [Not Recovered/Not Resolved]
  - Dry mouth [Not Recovered/Not Resolved]
  - Pleural fibrosis [Unknown]
  - Pulmonary function test abnormal [Not Recovered/Not Resolved]
  - Pulmonary arterial hypertension [Unknown]
  - Abdominal discomfort [Not Recovered/Not Resolved]
  - Pain in extremity [Not Recovered/Not Resolved]
  - Arthralgia [Not Recovered/Not Resolved]
  - Dyspepsia [Unknown]
  - Decreased appetite [Not Recovered/Not Resolved]
  - Flatulence [Recovering/Resolving]
  - Fatigue [Not Recovered/Not Resolved]
  - Myalgia [Unknown]
  - Stress [Unknown]

NARRATIVE: CASE EVENT DATE: 20160324
